FAERS Safety Report 9969950 (Version 6)
Quarter: 2015Q2

REPORT INFORMATION
  Report Type: Spontaneous
  Country: CZ (occurrence: CZ)
  Receive Date: 20140306
  Receipt Date: 20150512
  Transmission Date: 20150821
  Serious: Yes (Hospitalization, Other)
  Sender: FDA-Public Use
  Company Number: CZ-MERCK-1402CZE011543

PATIENT
  Age: 71 Year
  Sex: Female
  Weight: 99 kg

DRUGS (16)
  1. PEGINTRON [Suspect]
     Active Substance: PEGINTERFERON ALFA-2B
     Indication: HEPATITIS C
     Dosage: 150 MICROGRAM QW
     Route: 058
     Dates: start: 20131203, end: 20140217
  2. GLYCLADA [Concomitant]
     Dosage: 60 MG, QAM
     Route: 048
     Dates: start: 2012
  3. ONGLYZA [Concomitant]
     Active Substance: SAXAGLIPTIN HYDROCHLORIDE
     Dosage: 5 MG, QAM
     Route: 048
     Dates: start: 2012
  4. REBETOL [Suspect]
     Active Substance: RIBAVIRIN
     Dosage: 200 MG, BID
     Route: 048
     Dates: start: 20140124, end: 20140206
  5. VALOSUN BIOPRON 9 [Concomitant]
     Indication: DYSPEPSIA
     Dosage: UNK
     Route: 048
     Dates: start: 20140128
  6. PYRIDOXINE [Concomitant]
     Active Substance: PYRIDOXINE
     Indication: NEUTROPENIA
     Dosage: 20MG, TID/ TOTAL DAILY DOSE 60 MG
     Route: 048
     Dates: start: 20131231, end: 20140228
  7. REBETOL [Suspect]
     Active Substance: RIBAVIRIN
     Indication: HEPATITIS C
     Dosage: 600 MG, BID
     Route: 048
     Dates: start: 20131203, end: 20140114
  8. REBETOL [Suspect]
     Active Substance: RIBAVIRIN
     Dosage: 400 MG, BID
     Route: 048
     Dates: start: 20140115, end: 20140123
  9. VICTRELIS [Suspect]
     Active Substance: BOCEPREVIR
     Indication: HEPATITIS C
     Dosage: TID, 12 TABLETS TOTAL DAILY
     Route: 048
     Dates: start: 20131230, end: 20140219
  10. METFORMIN [Concomitant]
     Active Substance: METFORMIN HYDROCHLORIDE
     Dosage: 1DF-1/2DF-1DF/DAILY
     Route: 048
     Dates: start: 2012
  11. KAPIDIN [Concomitant]
     Dosage: 1 DF, QAM
     Route: 048
  12. REBETOL [Suspect]
     Active Substance: RIBAVIRIN
     Dosage: 200 MG, QD
     Route: 048
     Dates: start: 20140207, end: 20140224
  13. APO-DICLO [Concomitant]
     Indication: BACK PAIN
     Dosage: PRN (BID), TOTAL DAILY DOSE 100 MG
     Route: 048
     Dates: start: 20140128, end: 20140228
  14. PRESTARIUM NEO COMBI [Concomitant]
     Active Substance: INDAPAMIDE\PERINDOPRIL ARGININE
     Dosage: 1 DF, QAM
     Route: 048
     Dates: start: 2011
  15. FOLIC ACID. [Concomitant]
     Active Substance: FOLIC ACID
     Indication: ANAEMIA
     Dosage: TID, TOTAL DAILY DOSE 30 MG
     Route: 048
     Dates: start: 20131231, end: 20140228
  16. APO-DICLO [Concomitant]
     Indication: HEADACHE

REACTIONS (13)
  - Diarrhoea [Recovered/Resolved]
  - Platelet count decreased [Unknown]
  - Blood creatinine increased [Unknown]
  - Dysgeusia [Unknown]
  - Anaemia [Recovering/Resolving]
  - Aspartate aminotransferase increased [Unknown]
  - Nausea [Unknown]
  - Dehydration [Recovered/Resolved]
  - Dyspepsia [Unknown]
  - White blood cell count decreased [Unknown]
  - Hypokalaemia [Recovered/Resolved]
  - Blood glucose increased [Unknown]
  - Abdominal pain [Unknown]

NARRATIVE: CASE EVENT DATE: 20131230
